FAERS Safety Report 5709800-9 (Version None)
Quarter: 2008Q2

REPORT INFORMATION
  Report Type: 
  Country: None (occurrence: None)
  Receive Date: 20080418
  Receipt Date: 20080409
  Transmission Date: 20081010
  Serious: Yes (Other)
  Sender: FDA-Public Use
  Company Number: US-JNJFOC-20080403307

PATIENT
  Age: 37 Year
  Sex: Female

DRUGS (2)
  1. TOPAMAX [Suspect]
     Dosage: FOUR 25 MG TABLETS
     Route: 048
  2. TOPAMAX [Suspect]
     Indication: WEIGHT DECREASED
     Dosage: ONE 100 MG TABLET
     Route: 048

REACTIONS (6)
  - ANXIETY [None]
  - DRUG ADMINISTRATION ERROR [None]
  - EYE MOVEMENT DISORDER [None]
  - EYE PAIN [None]
  - EYE SWELLING [None]
  - VISION BLURRED [None]
